FAERS Safety Report 18836527 (Version 1)
Quarter: 2021Q1

REPORT INFORMATION
  Report Type: Spontaneous
  Country: US (occurrence: US)
  Receive Date: 20210203
  Receipt Date: 20210203
  Transmission Date: 20210419
  Serious: No
  Sender: FDA-Public Use
  Company Number: US-ALLERGAN-2010516US

PATIENT
  Sex: Female

DRUGS (1)
  1. BOTOX COSMETIC [Suspect]
     Active Substance: ONABOTULINUMTOXINA
     Indication: SKIN WRINKLING
     Dosage: UNK UNK, SINGLE
     Route: 042
     Dates: start: 201911, end: 201911

REACTIONS (5)
  - Skin mass [Not Recovered/Not Resolved]
  - Thrombosis [Not Recovered/Not Resolved]
  - Incorrect route of product administration [Unknown]
  - Swelling [Unknown]
  - Therapeutic response decreased [Unknown]
